FAERS Safety Report 24732986 (Version 2)
Quarter: 2025Q2

REPORT INFORMATION
  Report Type: Spontaneous
  Country: US (occurrence: US)
  Receive Date: 20241213
  Receipt Date: 20250415
  Transmission Date: 20250717
  Serious: Yes (Other)
  Sender: SANOFI AVENTIS
  Company Number: US-SA-2024SA363921

PATIENT
  Age: 72 Year
  Sex: Male

DRUGS (16)
  1. REZUROCK [Suspect]
     Active Substance: BELUMOSUDIL
     Indication: Acute lymphocytic leukaemia
     Dosage: 200 MG, QD
     Route: 048
  2. ASPIRIN [Concomitant]
     Active Substance: ASPIRIN
  3. BACTRIM DS [Concomitant]
     Active Substance: SULFAMETHOXAZOLE\TRIMETHOPRIM
  4. BACTRIM DS [Concomitant]
     Active Substance: SULFAMETHOXAZOLE\TRIMETHOPRIM
  5. GENTEAL TEARS (MILD) [Concomitant]
     Active Substance: DEXTRAN 70\HYPROMELLOSE 2910 (4000 MPA.S)
  6. JAKAFI [Concomitant]
     Active Substance: RUXOLITINIB
  7. JAKAFI [Concomitant]
     Active Substance: RUXOLITINIB
  8. MURO 128 [Concomitant]
     Active Substance: SODIUM CHLORIDE
  9. ACYCLOVIR [Concomitant]
     Active Substance: ACYCLOVIR
  10. ACYCLOVIR [Concomitant]
     Active Substance: ACYCLOVIR
  11. VITAMIN D3 [Concomitant]
     Active Substance: CHOLECALCIFEROL
  12. TACROLIMUS [Concomitant]
     Active Substance: TACROLIMUS
  13. TACROLIMUS [Concomitant]
     Active Substance: TACROLIMUS
  14. ACETYLCYSTEINE [Concomitant]
     Active Substance: ACETYLCYSTEINE
     Route: 047
  15. LOTEPREDNOL [Concomitant]
     Active Substance: LOTEPREDNOL
  16. ASPIRIN [Concomitant]
     Active Substance: ASPIRIN

REACTIONS (2)
  - Pneumonia [Recovering/Resolving]
  - Drug ineffective for unapproved indication [Unknown]
